FAERS Safety Report 19258801 (Version 1)
Quarter: 2021Q2

REPORT INFORMATION
  Report Type: Report from Study
  Country: IT (occurrence: IT)
  Receive Date: 20210514
  Receipt Date: 20210514
  Transmission Date: 20210717
  Serious: Yes (Other)
  Sender: FDA-Public Use
  Company Number: IT-TEVA-2021-IT-1910516

PATIENT
  Age: 49 Year
  Sex: Male

DRUGS (3)
  1. RISPERIDONE. [Concomitant]
     Active Substance: RISPERIDONE
  2. LORAZEPAM. [Suspect]
     Active Substance: LORAZEPAM
     Indication: DRUG ABUSE
     Dosage: 10MILLIGRAM
     Route: 048
     Dates: start: 20210313, end: 20210313
  3. DEPAKIN CHRONO 500 MG COMPRESSE A RILASCIO PROLUNGATO [Concomitant]
     Active Substance: VALPROIC ACID
     Dosage: EXTENDED RELEASE

REACTIONS (2)
  - Drug abuse [Recovering/Resolving]
  - Speech disorder [Recovering/Resolving]

NARRATIVE: CASE EVENT DATE: 20210314
